FAERS Safety Report 21702695 (Version 3)
Quarter: 2023Q2

REPORT INFORMATION
  Report Type: Other
  Country: AU (occurrence: AU)
  Receive Date: 20221209
  Receipt Date: 20230509
  Transmission Date: 20230721
  Serious: Yes (Other)
  Sender: FDA-Public Use
  Company Number: AU-TOLMAR, INC.-22AU037544

PATIENT
  Age: 73 Year
  Sex: Male

DRUGS (2)
  1. ELIGARD [Suspect]
     Active Substance: LEUPROLIDE ACETATE
     Indication: Prostate cancer
     Dosage: 7.5 MILLIGRAM, Q 1 MONTH
     Dates: start: 20221019
  2. RADIATION THERAPY [Concomitant]
     Active Substance: RADIATION THERAPY
     Indication: Product used for unknown indication

REACTIONS (5)
  - Rheumatoid arthritis [Unknown]
  - Diabetes mellitus [Unknown]
  - COVID-19 [Unknown]
  - Peripheral swelling [Unknown]
  - Hot flush [Unknown]

NARRATIVE: CASE EVENT DATE: 20221113
